FAERS Safety Report 17836199 (Version 2)
Quarter: 2020Q2

REPORT INFORMATION
  Report Type: Spontaneous
  Country: ES (occurrence: ES)
  Receive Date: 20200528
  Receipt Date: 20200609
  Transmission Date: 20200714
  Serious: Yes (Hospitalization, Other)
  Sender: FDA-Public Use
  Company Number: ES-VELOXIS PHARMACEUTICALS-2020VELES-000499

PATIENT
  Age: 65 Year
  Sex: Male

DRUGS (6)
  1. LOPINAVIR/RITONAVIR [Interacting]
     Active Substance: LOPINAVIR\RITONAVIR
     Indication: COVID-19
     Dosage: 200/100MG
     Route: 048
     Dates: start: 202003
  2. HYDROXYCHLOROQUINE [Concomitant]
     Active Substance: HYDROXYCHLOROQUINE
     Dosage: 800 MG, QD
     Route: 048
     Dates: start: 202003
  3. HYDROXYCHLOROQUINE [Concomitant]
     Active Substance: HYDROXYCHLOROQUINE
     Indication: COVID-19
     Dosage: 400 MILLIGRAM, QD
     Route: 048
  4. PREDNISONE. [Suspect]
     Active Substance: PREDNISONE
     Indication: IMMUNOSUPPRESSION
  5. ENVARSUS XR [Suspect]
     Active Substance: TACROLIMUS
     Indication: IMMUNOSUPPRESSION
     Dosage: UNK
     Route: 065
     Dates: start: 202003
  6. MYCOPHENOLIC ACID. [Suspect]
     Active Substance: MYCOPHENOLIC ACID
     Indication: IMMUNOSUPPRESSION
     Dosage: DOSE REDUCE
     Route: 065
     Dates: start: 202003

REACTIONS (8)
  - C-reactive protein increased [Unknown]
  - Gastrointestinal disorder [Unknown]
  - Nephropathy toxic [Unknown]
  - Acute respiratory distress syndrome [Unknown]
  - Off label use [Unknown]
  - Drug level increased [Unknown]
  - Coronavirus infection [Unknown]
  - Drug interaction [Unknown]

NARRATIVE: CASE EVENT DATE: 202003
